FAERS Safety Report 9812668 (Version 1)
Quarter: 2014Q1

REPORT INFORMATION
  Report Type: Spontaneous
  Country: IT (occurrence: IT)
  Receive Date: 20140113
  Receipt Date: 20140113
  Transmission Date: 20141002
  Serious: Yes (Other)
  Sender: FDA-Public Use
  Company Number: IT-DRREDDYS-GER/ITL/14/0036829

PATIENT
  Age: 76 Year
  Sex: Female

DRUGS (4)
  1. IRBESARTAN [Suspect]
     Indication: PRODUCT USED FOR UNKNOWN INDICATION
     Route: 048
     Dates: start: 20121004, end: 20131003
  2. DEPAKIN [Concomitant]
     Indication: EPILEPSY
  3. GARDENALE [Concomitant]
     Indication: EPILEPSY
     Route: 048
  4. BRUFEN [Concomitant]
     Indication: JOINT INJURY
     Route: 048
     Dates: start: 20131003, end: 20131003

REACTIONS (4)
  - Syncope [Recovering/Resolving]
  - Head injury [Unknown]
  - Joint injury [Unknown]
  - Fall [Unknown]
